FAERS Safety Report 13106562 (Version 1)
Quarter: 2017Q1

REPORT INFORMATION
  Report Type: Report from Study
  Country: US (occurrence: US)
  Receive Date: 20170111
  Receipt Date: 20170111
  Transmission Date: 20170428
  Serious: Yes (Hospitalization)
  Sender: FDA-Public Use
  Company Number: US-ACTELION-A-US2017-148011

PATIENT
  Age: 9 Year
  Sex: Female

DRUGS (10)
  1. GABAPENTIN. [Concomitant]
     Active Substance: GABAPENTIN
     Dosage: 3 ML, TID
     Route: 048
     Dates: start: 20121109
  2. PREVACID [Concomitant]
     Active Substance: LANSOPRAZOLE
     Dosage: 1 DF, AS DIRECTED
     Route: 048
     Dates: start: 20121109
  3. CHILDRENS ZYRTEC [Concomitant]
     Active Substance: CETIRIZINE HYDROCHLORIDE
     Dosage: 5 ML, BID
     Route: 048
     Dates: start: 20121109
  4. NAC [Concomitant]
     Dosage: 1 DF, QD
     Route: 048
     Dates: start: 20121109
  5. ROBINUL [Concomitant]
     Active Substance: GLYCOPYRROLATE
     Dosage: 0.5 MG, TID
     Route: 048
     Dates: start: 20121109
  6. ALBUTEROL. [Concomitant]
     Active Substance: ALBUTEROL
     Dosage: 1 DOSE VIA NEB Q3 HRS
     Dates: start: 20121109
  7. AXID [Concomitant]
     Active Substance: NIZATIDINE
     Dosage: 5 ML, QD
     Route: 048
     Dates: start: 20121109
  8. CLONAZEPAM. [Concomitant]
     Active Substance: CLONAZEPAM
     Dosage: 0.125 MG, BID
     Route: 048
     Dates: start: 20121109
  9. VIMPAT [Concomitant]
     Active Substance: LACOSAMIDE
     Dosage: 15 ML, QID
     Route: 048
     Dates: start: 20141014
  10. ZAVESCA [Suspect]
     Active Substance: MIGLUSTAT
     Indication: LIPIDOSIS
     Dosage: 100 MG, QID
     Route: 048
     Dates: start: 20121114

REACTIONS (1)
  - Corona virus infection [Unknown]
